FAERS Safety Report 12400853 (Version 3)
Quarter: 2017Q2

REPORT INFORMATION
  Report Type: Spontaneous
  Country: US (occurrence: US)
  Receive Date: 20160525
  Receipt Date: 20170606
  Transmission Date: 20170830
  Serious: Yes (Other)
  Sender: FDA-Public Use
  Company Number: US-SA-2015SA129930

PATIENT
  Age: 78 Year
  Sex: Male
  Weight: 57.6 kg

DRUGS (7)
  1. ASPIRIN. [Concomitant]
     Active Substance: ASPIRIN
  2. LOSARTAN. [Concomitant]
     Active Substance: LOSARTAN
     Indication: BLOOD PRESSURE MEASUREMENT
  3. ZOCOR [Concomitant]
     Active Substance: SIMVASTATIN
     Indication: BLOOD CHOLESTEROL
  4. LANTUS [Suspect]
     Active Substance: INSULIN GLARGINE
     Indication: DIABETES MELLITUS
     Dosage: DOSE:20 UNIT(S)
     Route: 065
     Dates: start: 1996
  5. OMEPRAZOLE. [Concomitant]
     Active Substance: OMEPRAZOLE
     Indication: GASTROOESOPHAGEAL REFLUX DISEASE
  6. KEPPRA [Concomitant]
     Active Substance: LEVETIRACETAM
     Indication: SEIZURE
  7. METOPROLOL. [Concomitant]
     Active Substance: METOPROLOL

REACTIONS (4)
  - Blood glucose decreased [Unknown]
  - Hypoglycaemic coma [Unknown]
  - Expired product administered [Unknown]
  - Blood glucose increased [Unknown]
